FAERS Safety Report 15626941 (Version 2)
Quarter: 2018Q4

REPORT INFORMATION
  Report Type: Spontaneous
  Country: DE (occurrence: DE)
  Receive Date: 20181116
  Receipt Date: 20181226
  Transmission Date: 20190205
  Serious: Yes (Hospitalization, Other)
  Sender: FDA-Public Use
  Company Number: DE-PFIZER INC-2018469218

PATIENT
  Sex: Male

DRUGS (4)
  1. LYRICA [Suspect]
     Active Substance: PREGABALIN
     Dosage: 150 MG, UNK
  2. LYRICA [Suspect]
     Active Substance: PREGABALIN
     Dosage: 600 MG, DAILY
  3. SERTRALINE HCL [Suspect]
     Active Substance: SERTRALINE HYDROCHLORIDE
     Dosage: 150 MG, UNK
  4. AMISULPRID [Suspect]
     Active Substance: AMISULPRIDE
     Dosage: 400 MG, UNK
     Route: 048

REACTIONS (5)
  - Road traffic accident [Unknown]
  - Withdrawal syndrome [Unknown]
  - Drug abuse [Unknown]
  - Sleep deficit [Unknown]
  - Altered state of consciousness [Unknown]
